FAERS Safety Report 4945386-4 (Version None)
Quarter: 2006Q1

REPORT INFORMATION
  Report Type: 
  Country: None (occurrence: None)
  Receive Date: 20060315
  Receipt Date: 20060315
  Transmission Date: 20060701
  Serious: Yes (Hospitalization)
  Sender: FDA-Public Use
  Company Number: None

PATIENT
  Age: 38 Year
  Sex: Female
  Weight: 51 kg

DRUGS (2)
  1. PROPOFOL [Suspect]
     Indication: GENERAL ANAESTHESIA
     Dosage: 150 MG ONCE IV DRIP
     Route: 041
     Dates: start: 20060301, end: 20060301
  2. LIDOCAINE [Suspect]
     Indication: GENERAL ANAESTHESIA
     Dosage: 40 MG ONCE IV BOLUS
     Route: 040
     Dates: start: 20060301, end: 20060301

REACTIONS (1)
  - GRAND MAL CONVULSION [None]
